FAERS Safety Report 4392728-7 (Version None)
Quarter: 2004Q3

REPORT INFORMATION
  Report Type: 
  Country: None (occurrence: None)
  Receive Date: 20040707
  Receipt Date: 20040628
  Transmission Date: 20050211
  Serious: Yes (Hospitalization)
  Sender: FDA-Public Use
  Company Number: 2004SE02502

PATIENT
  Age: 80 Year
  Sex: Male

DRUGS (9)
  1. ROSUVASTATIN [Suspect]
     Indication: CARDIAC FAILURE
     Dates: start: 20040401
  2. ALBYL-E [Concomitant]
  3. FUROSEMIDE [Concomitant]
  4. LAMICTAL [Concomitant]
  5. METOPROLOL SUCCINATE [Concomitant]
  6. SEROXAT ^NOVO NORDISK^ [Concomitant]
  7. ZYLORIC ^FRESENIUS^ [Concomitant]
  8. SERETIDE ^ALLEN + HANBURYS LTD^ [Concomitant]
  9. LACTULOSE [Concomitant]

REACTIONS (3)
  - CONCUSSION [None]
  - FALL [None]
  - LOSS OF CONSCIOUSNESS [None]
